FAERS Safety Report 7953680-8 (Version None)
Quarter: 2011Q4

REPORT INFORMATION
  Report Type: 
  Country: None (occurrence: None)
  Receive Date: 20111202
  Receipt Date: 20111122
  Transmission Date: 20120403
  Serious: Yes (Other)
  Sender: FDA-Public Use
  Company Number: US-JNJFOC-20111110082

PATIENT
  Sex: Female
  Weight: 90.72 kg

DRUGS (3)
  1. KLONOPIN [Concomitant]
     Indication: ARRHYTHMIA
     Route: 048
     Dates: start: 19970101
  2. REMICADE [Suspect]
     Indication: ANKYLOSING SPONDYLITIS
     Route: 042
     Dates: start: 20040101, end: 20090601
  3. TYLENOL W/ CODEINE NO. 4 [Concomitant]
     Indication: PAIN
     Dosage: 2-3 TIMES PER DAY.
     Route: 048
     Dates: start: 20010101

REACTIONS (4)
  - INFLAMMATION [None]
  - RENAL CYST [None]
  - OVARIAN CYST [None]
  - DRUG EFFECT DECREASED [None]
